FAERS Safety Report 9496484 (Version 2)
Quarter: 2014Q1

REPORT INFORMATION
  Report Type: Spontaneous
  Country: JP (occurrence: JP)
  Receive Date: 20130904
  Receipt Date: 20140207
  Transmission Date: 20141002
  Serious: Yes (Other)
  Sender: FDA-Public Use
  Company Number: JP-OTSUKA-JP-2013-13423

PATIENT
  Age: 64 Year
  Sex: Male

DRUGS (1)
  1. PLETAAL [Suspect]
     Indication: PERIPHERAL ARTERIAL OCCLUSIVE DISEASE
     Dosage: UNK
     Route: 048
     Dates: start: 200805

REACTIONS (3)
  - Ulcer [Recovered/Resolved with Sequelae]
  - Sepsis [Unknown]
  - Pain in extremity [Unknown]
